FAERS Safety Report 25305251 (Version 1)
Quarter: 2025Q2

REPORT INFORMATION
  Report Type: Spontaneous
  Country: US (occurrence: None)
  Receive Date: 20250513
  Receipt Date: 20250513
  Transmission Date: 20250717
  Serious: Yes (Hospitalization)
  Sender: FDA-CTU
  Company Number: None

PATIENT
  Age: 72 Year
  Sex: Male
  Weight: 69 kg

DRUGS (3)
  1. SULFAMETHOXAZOLE AND TRIMETHOPRIM [Suspect]
     Active Substance: SULFAMETHOXAZOLE\TRIMETHOPRIM
     Indication: Urinary tract infection
     Dosage: FREQUENCY : TWICE A DAY;?
     Route: 048
     Dates: start: 20240701, end: 20240701
  2. CEFTRIAXONE [Suspect]
     Active Substance: CEFTRIAXONE
  3. LEVOFLOXACIN [Suspect]
     Active Substance: LEVOFLOXACIN

REACTIONS (14)
  - Acute kidney injury [None]
  - Dizziness [None]
  - Vertigo [None]
  - Asthenia [None]
  - Dysphagia [None]
  - Oligodipsia [None]
  - Acute kidney injury [None]
  - Drug ineffective [None]
  - Rash [None]
  - Dehydration [None]
  - Cellulitis [None]
  - Acute kidney injury [None]
  - Localised infection [None]
  - Drug eruption [None]

NARRATIVE: CASE EVENT DATE: 20240704
